FAERS Safety Report 17457120 (Version 3)
Quarter: 2020Q1

REPORT INFORMATION
  Report Type: Spontaneous
  Country: US (occurrence: US)
  Receive Date: 20200225
  Receipt Date: 20200227
  Transmission Date: 20200409
  Serious: Yes (Other)
  Sender: FDA-Public Use
  Company Number: US-IPSEN BIOPHARMACEUTICALS, INC.-2020-03532

PATIENT
  Age: 79 Year
  Sex: Female

DRUGS (3)
  1. DYSPORT [Suspect]
     Active Substance: ABOBOTULINUMTOXINA
     Indication: TORTICOLLIS
  2. DYSPORT [Suspect]
     Active Substance: ABOBOTULINUMTOXINA
     Indication: BLEPHAROSPASM
     Dosage: 340 INTERNATIONAL UNITS
     Route: 065
     Dates: start: 20190926, end: 20190926
  3. DYSPORT [Suspect]
     Active Substance: ABOBOTULINUMTOXINA
     Indication: OFF LABEL USE

REACTIONS (5)
  - Transient ischaemic attack [Unknown]
  - Mastication disorder [Unknown]
  - Speech disorder [Unknown]
  - Facial paresis [Unknown]
  - Off label use [Unknown]

NARRATIVE: CASE EVENT DATE: 201909
